FAERS Safety Report 15523980 (Version 1)
Quarter: 2018Q4

REPORT INFORMATION
  Report Type: Spontaneous
  Country: US (occurrence: US)
  Receive Date: 20181018
  Receipt Date: 20181018
  Transmission Date: 20190205
  Serious: No
  Sender: FDA-Public Use
  Company Number: US-BRISTOL-MYERS SQUIBB COMPANY-BMS-2018-097064

PATIENT
  Sex: Female
  Weight: 71.2 kg

DRUGS (1)
  1. ELIQUIS [Suspect]
     Active Substance: APIXABAN
     Indication: THROMBOSIS
     Dosage: 5 MG, BID
     Route: 048

REACTIONS (1)
  - Therapeutic response unexpected [Unknown]
